FAERS Safety Report 4908460-4 (Version None)
Quarter: 2006Q1

REPORT INFORMATION
  Report Type: 
  Country: None (occurrence: None)
  Receive Date: 20060210
  Receipt Date: 20050715
  Transmission Date: 20060701
  Serious: No
  Sender: FDA-Public Use
  Company Number: US-GLAXOSMITHKLINE-A0566467A

PATIENT
  Age: 47 Year
  Sex: Female

DRUGS (2)
  1. PAXIL CR [Suspect]
     Indication: BIPOLAR DISORDER
     Dosage: 25MG PER DAY
     Route: 048
     Dates: end: 20041201
  2. XANAX [Concomitant]

REACTIONS (8)
  - CRYING [None]
  - DRUG WITHDRAWAL SYNDROME [None]
  - FEELINGS OF WORTHLESSNESS [None]
  - INSOMNIA [None]
  - PARAESTHESIA [None]
  - SELF ESTEEM DECREASED [None]
  - SOMNOLENCE [None]
  - STOMACH DISCOMFORT [None]
